FAERS Safety Report 4482276-8 (Version None)
Quarter: 2004Q4

REPORT INFORMATION
  Report Type: 
  Country: None (occurrence: None)
  Receive Date: 20041020
  Receipt Date: 20041004
  Transmission Date: 20050328
  Serious: Yes (Hospitalization)
  Sender: FDA-Public Use
  Company Number: USA041080096

PATIENT
  Age: 79 Year
  Sex: Female

DRUGS (5)
  1. CYMBALTA [Suspect]
     Indication: DEPRESSION
     Dosage: 10 MG/1 DAY
     Dates: start: 20040910
  2. METOPROLOL SUCCINATE [Concomitant]
  3. LANOXIN (DIGOXIN STREULI) [Concomitant]
  4. COUMADIN [Concomitant]
  5. FOSAMAX [Concomitant]

REACTIONS (1)
  - HYPONATRAEMIA [None]
